FAERS Safety Report 7364053-3 (Version None)
Quarter: 2011Q1

REPORT INFORMATION
  Report Type: 
  Country: None (occurrence: None)
  Receive Date: 20110321
  Receipt Date: 20110308
  Transmission Date: 20110831
  Serious: Yes (Other)
  Sender: FDA-Public Use
  Company Number: PHHY2011US19268

PATIENT
  Sex: Female
  Weight: 86.168 kg

DRUGS (1)
  1. GILENYA [Suspect]
     Indication: MULTIPLE SCLEROSIS
     Dosage: 0.5 MG, DAILY
     Route: 048
     Dates: start: 20110308

REACTIONS (4)
  - VENTRICULAR EXTRASYSTOLES [None]
  - PALPITATIONS [None]
  - HEART RATE IRREGULAR [None]
  - DIZZINESS [None]
